FAERS Safety Report 25769927 (Version 1)
Quarter: 2025Q3

REPORT INFORMATION
  Report Type: Spontaneous
  Country: US (occurrence: US)
  Receive Date: 20250907
  Receipt Date: 20250907
  Transmission Date: 20251020
  Serious: No
  Sender: ELI LILLY AND COMPANY
  Company Number: US-ELI_LILLY_AND_COMPANY-US202509004180

PATIENT
  Age: 48 Year
  Sex: Male

DRUGS (2)
  1. TALTZ [Suspect]
     Active Substance: IXEKIZUMAB
     Indication: Eczema
     Route: 065
     Dates: start: 20250902
  2. TALTZ [Suspect]
     Active Substance: IXEKIZUMAB
     Indication: Arthralgia

REACTIONS (2)
  - Off label use [Unknown]
  - Injection site mass [Unknown]

NARRATIVE: CASE EVENT DATE: 20250902
